FAERS Safety Report 5902445-7 (Version None)
Quarter: 2008Q3

REPORT INFORMATION
  Report Type: 
  Country: None (occurrence: None)
  Receive Date: 20080929
  Receipt Date: 20080916
  Transmission Date: 20090109
  Serious: No
  Sender: FDA-Public Use
  Company Number: SE-ELI_LILLY_AND_COMPANY-SE200809000090

PATIENT
  Sex: Female

DRUGS (1)
  1. ZYPREXA [Suspect]
     Indication: SCHIZOPHRENIA
     Dosage: 20 MG, DAILY (1/D)
     Route: 048
     Dates: start: 20080131, end: 20080223

REACTIONS (2)
  - LEUKOPENIA [None]
  - NEUTROPENIA [None]
